FAERS Safety Report 17220093 (Version 3)
Quarter: 2020Q1

REPORT INFORMATION
  Report Type: Spontaneous
  Country: DE (occurrence: DE)
  Receive Date: 20191231
  Receipt Date: 20200207
  Transmission Date: 20200409
  Serious: Yes (Other)
  Sender: FDA-Public Use
  Company Number: NVSC2019DE026028

PATIENT
  Age: 9 Year
  Sex: Female
  Weight: 26 kg

DRUGS (4)
  1. PREDNISOLONE. [Suspect]
     Active Substance: PREDNISOLONE
     Indication: IMMUNOSUPPRESSION
     Dosage: UNK, BID
     Route: 065
     Dates: end: 20191007
  2. MYCOPHENOLATE MOFETIL. [Suspect]
     Active Substance: MYCOPHENOLATE MOFETIL
     Indication: IMMUNOSUPPRESSION
     Dosage: UNK
     Route: 065
     Dates: end: 20190905
  3. TACROLIMUS. [Suspect]
     Active Substance: TACROLIMUS
     Indication: HEART TRANSPLANT
     Dosage: 2.5 MG, (2X2.5 MG)
     Route: 065
  4. CERTICAN [Suspect]
     Active Substance: EVEROLIMUS
     Indication: HEART TRANSPLANT
     Dosage: 3.5 MG, QD
     Route: 048
     Dates: start: 201908

REACTIONS (3)
  - Pancytopenia [Unknown]
  - Myelodysplastic syndrome [Unknown]
  - Dysplasia [Unknown]

NARRATIVE: CASE EVENT DATE: 201908
